FAERS Safety Report 22040909 (Version 1)
Quarter: 2023Q1

REPORT INFORMATION
  Report Type: Spontaneous
  Country: SE (occurrence: SE)
  Receive Date: 20230227
  Receipt Date: 20230227
  Transmission Date: 20230418
  Serious: Yes (Life-Threatening, Hospitalization)
  Sender: FDA-Public Use
  Company Number: None

PATIENT
  Age: 48 Year
  Sex: Female

DRUGS (3)
  1. RITUXIMAB [Suspect]
     Active Substance: RITUXIMAB
     Indication: Pruritus
     Dosage: UNK
  2. RITUXIMAB [Suspect]
     Active Substance: RITUXIMAB
     Indication: Arthropathy
  3. RITUXIMAB [Suspect]
     Active Substance: RITUXIMAB
     Indication: Rash

REACTIONS (8)
  - Headache [Recovered/Resolved]
  - Gastrointestinal disorder [Recovered/Resolved with Sequelae]
  - Rash [Recovered/Resolved with Sequelae]
  - Nausea [Unknown]
  - Meningitis [Recovered/Resolved with Sequelae]
  - Urinary tract obstruction [Recovered/Resolved with Sequelae]
  - Pyrexia [Recovered/Resolved]
  - Off label use [Unknown]
